FAERS Safety Report 13162518 (Version 1)
Quarter: 2017Q1

REPORT INFORMATION
  Report Type: Spontaneous
  Country: US (occurrence: US)
  Receive Date: 20170130
  Receipt Date: 20170130
  Transmission Date: 20170428
  Serious: Yes (Other)
  Sender: FDA-Public Use
  Company Number: US-BRISTOL-MYERS SQUIBB COMPANY-BMS-2017-005864

PATIENT
  Age: 73 Year
  Sex: Male

DRUGS (3)
  1. EMPLICITI [Suspect]
     Active Substance: ELOTUZUMAB
     Indication: PLASMA CELL MYELOMA
     Route: 065
     Dates: start: 20170113
  2. LENALIDOMIDE [Concomitant]
     Active Substance: LENALIDOMIDE
     Indication: PRODUCT USED FOR UNKNOWN INDICATION
     Route: 065
  3. DEXAMETHASON                       /00016001/ [Concomitant]
     Active Substance: DEXAMETHASONE
     Indication: PRODUCT USED FOR UNKNOWN INDICATION
     Route: 065

REACTIONS (1)
  - Thrombocytopenia [Unknown]

NARRATIVE: CASE EVENT DATE: 20170120
